FAERS Safety Report 7952610-2 (Version None)
Quarter: 2011Q4

REPORT INFORMATION
  Report Type: 
  Country: None (occurrence: None)
  Receive Date: 20111201
  Receipt Date: 20111128
  Transmission Date: 20120403
  Serious: Yes (Death, Life-Threatening)
  Sender: FDA-Public Use
  Company Number: ES-GENZYME-CLOF-1001610

PATIENT
  Sex: Female
  Weight: 65 kg

DRUGS (11)
  1. ENALAPRIL MALEATE [Concomitant]
     Indication: HYPERTENSION
     Dosage: 10 MG AM, 5 MG PM
     Route: 048
     Dates: start: 20110412
  2. SCOPOLAMINE [Concomitant]
     Indication: MALAISE
     Dosage: 20 MG/ML, QD
     Route: 042
     Dates: start: 20110507, end: 20110508
  3. EVOLTRA [Suspect]
     Indication: ACUTE MYELOID LEUKAEMIA
     Dosage: 33 MG, QD
     Route: 042
     Dates: start: 20110413, end: 20110417
  4. PANTOPRAZOLE [Concomitant]
     Indication: PROPHYLAXIS
     Dosage: 40 MG, QD
     Route: 042
     Dates: start: 20110415
  5. METOCLOPRAMIDE [Concomitant]
     Indication: MALAISE
     Dosage: 10 MG, TID
     Route: 042
     Dates: start: 20110423, end: 20110508
  6. CHLORHEXIDINE GLUCONATE [Concomitant]
     Indication: INFECTION PROPHYLAXIS
     Dosage: MOUTHWASH TID
     Route: 048
     Dates: start: 20110430, end: 20110514
  7. FUROSEMIDE [Concomitant]
     Indication: DIURETIC THERAPY
     Dosage: 250 MG, QD
     Route: 042
     Dates: start: 20110415
  8. ACYCLOVIR [Concomitant]
     Indication: ANTIVIRAL TREATMENT
     Dosage: 300 MG, TID
     Route: 042
     Dates: start: 20110506, end: 20110512
  9. MYCOSTATIN [Concomitant]
     Indication: ANTIFUNGAL PROPHYLAXIS
     Dosage: MOUTHWASH TID
     Route: 048
     Dates: start: 20110430, end: 20110510
  10. MEROPENEM [Concomitant]
     Indication: ANTI-INFECTIVE THERAPY
     Dosage: 1 G, TID
     Route: 042
     Dates: start: 20110425, end: 20110509
  11. CYTARABINE [Suspect]
     Indication: ACUTE MYELOID LEUKAEMIA
     Dosage: 33 MG, QD
     Route: 042
     Dates: start: 20110413, end: 20110426

REACTIONS (2)
  - BACTERAEMIA [None]
  - NEUTROPENIA [None]
